FAERS Safety Report 7075539-3 (Version None)
Quarter: 2010Q4

REPORT INFORMATION
  Report Type: 
  Country: None (occurrence: None)
  Receive Date: 20101030
  Receipt Date: 20100922
  Transmission Date: 20110411
  Serious: No
  Sender: FDA-Public Use
  Company Number: US-WYE-H17685910

PATIENT
  Sex: Female

DRUGS (3)
  1. PRISTIQ [Suspect]
     Dates: start: 20100101, end: 20100101
  2. PRISTIQ [Suspect]
     Dates: start: 20100101, end: 20100101
  3. PRISTIQ [Suspect]
     Dates: start: 20100101, end: 20100101

REACTIONS (14)
  - ABNORMAL DREAMS [None]
  - ANXIETY [None]
  - DIARRHOEA [None]
  - DIZZINESS [None]
  - DRUG INEFFECTIVE [None]
  - DRUG WITHDRAWAL SYNDROME [None]
  - FATIGUE [None]
  - HEADACHE [None]
  - HYPERHIDROSIS [None]
  - INSOMNIA [None]
  - IRRITABILITY [None]
  - NAUSEA [None]
  - NONSPECIFIC REACTION [None]
  - PARAESTHESIA [None]
